FAERS Safety Report 12689558 (Version 4)
Quarter: 2017Q1

REPORT INFORMATION
  Report Type: Spontaneous
  Country: IE (occurrence: IE)
  Receive Date: 20160826
  Receipt Date: 20170130
  Transmission Date: 20170428
  Serious: Yes (Other)
  Sender: FDA-Public Use
  Company Number: IE-JNJFOC-20160817784

PATIENT
  Age: 62 Year
  Sex: Female

DRUGS (6)
  1. STELARA [Suspect]
     Active Substance: USTEKINUMAB
     Indication: ARTHRITIS
     Route: 058
     Dates: start: 20160620
  2. COLGOUT [Concomitant]
     Active Substance: COLCHICINE
     Route: 048
  3. D PEARLS [Concomitant]
     Route: 048
  4. FOSAVANCE [Concomitant]
     Active Substance: ALENDRONATE SODIUM\CHOLECALCIFEROL
     Route: 048
  5. STELARA [Suspect]
     Active Substance: USTEKINUMAB
     Indication: ARTHRITIS
     Route: 058
     Dates: end: 20161114
  6. STELARA [Suspect]
     Active Substance: USTEKINUMAB
     Indication: ARTHRITIS
     Route: 058
     Dates: start: 20140429

REACTIONS (4)
  - Product use issue [Unknown]
  - Off label use [Unknown]
  - Skin lesion [Recovered/Resolved]
  - Alopecia [Not Recovered/Not Resolved]

NARRATIVE: CASE EVENT DATE: 20140429
